FAERS Safety Report 9803555 (Version 1)
Quarter: 2014Q1

REPORT INFORMATION
  Report Type: Spontaneous
  Country: US (occurrence: US)
  Receive Date: 20140108
  Receipt Date: 20140108
  Transmission Date: 20141002
  Serious: No
  Sender: FDA-Public Use
  Company Number: US-GLAXOSMITHKLINE-A1006902A

PATIENT
  Age: 65 Year
  Sex: Female

DRUGS (4)
  1. LOVAZA [Suspect]
     Indication: BLOOD TRIGLYCERIDES INCREASED
     Dosage: 4G PER DAY
     Route: 048
  2. FENOFIBRATE [Suspect]
  3. GALANTAMINE [Concomitant]
  4. ATORVASTATIN [Concomitant]

REACTIONS (1)
  - Hypotension [Unknown]
